FAERS Safety Report 9424741 (Version 1)
Quarter: 2013Q3

REPORT INFORMATION
  Report Type: Report from Study
  Country: BR (occurrence: BR)
  Receive Date: 20130729
  Receipt Date: 20130729
  Transmission Date: 20140515
  Serious: Yes (Hospitalization)
  Sender: FDA-Public Use
  Company Number: BR-US-EMD SERONO, INC.-7224828

PATIENT
  Age: 46 Year
  Sex: Female

DRUGS (1)
  1. REBIF [Suspect]
     Indication: MULTIPLE SCLEROSIS
     Dates: start: 20130515

REACTIONS (7)
  - Syncope [Unknown]
  - Dizziness [Recovering/Resolving]
  - Fall [Unknown]
  - Eye injury [Unknown]
  - Contusion [Unknown]
  - Haemorrhage [Unknown]
  - Head injury [Unknown]
